FAERS Safety Report 14034462 (Version 2)
Quarter: 2017Q4

REPORT INFORMATION
  Report Type: Spontaneous
  Country: US (occurrence: US)
  Receive Date: 20171003
  Receipt Date: 20171029
  Transmission Date: 20180321
  Serious: Yes (Life-Threatening, Other)
  Sender: FDA-Public Use
  Company Number: US-009507513-1709USA014526

PATIENT
  Age: 54 Year
  Sex: Female

DRUGS (11)
  1. DEXAMETHASONE. [Suspect]
     Active Substance: DEXAMETHASONE
     Indication: PLASMA CELL MYELOMA
     Dosage: 3 CYCLES OF CARFILZOMIB, LENALIDOMIDE AND DEXAMETHASONE
  2. CYCLOPHOSPHAMIDE. [Suspect]
     Active Substance: CYCLOPHOSPHAMIDE
     Indication: PLASMA CELL MYELOMA
     Dosage: FLUDARABINE, BUSULFAN, AND CYCLOPHOSPHAMIDE CONDITIONING REGIMEN
  3. LENALIDOMIDE [Suspect]
     Active Substance: LENALIDOMIDE
     Indication: PLASMA CELL MYELOMA
     Dosage: 4 CYCLES OF LENALIDOMIDE, BORTEZOMIB, AND DEXAMETHASONE
  4. BORTEZOMIB [Suspect]
     Active Substance: BORTEZOMIB
     Indication: PLASMA CELL MYELOMA
     Dosage: 4 CYCLES OF LENALIDOMIDE, BORTEZOMIB, AND DEXAMETHASONE
  5. LENALIDOMIDE [Suspect]
     Active Substance: LENALIDOMIDE
     Dosage: 3 CYCLES OF CARFILZOMIB, LENALIDOMIDE AND DEXAMETHASONE
  6. DEXAMETHASONE. [Suspect]
     Active Substance: DEXAMETHASONE
     Dosage: 4 CYCLES OF LENALIDOMIDE, BORTEZOMIB, AND DEXAMETHASONE
  7. LENALIDOMIDE [Suspect]
     Active Substance: LENALIDOMIDE
     Dosage: 1 CYCLE OF LENALIDOMIDE AND DEXAMETHASONE
  8. FLUDARABINE PHOSPHATE. [Suspect]
     Active Substance: FLUDARABINE PHOSPHATE
     Indication: PLASMA CELL MYELOMA
     Dosage: FLUDARABINE, BUSULFAN, AND CYCLOPHOSPHAMIDE CONDITIONING REGIMEN
  9. BUSULFAN. [Suspect]
     Active Substance: BUSULFAN
     Indication: PLASMA CELL MYELOMA
     Dosage: FLUDARABINE, BUSULFAN, AND CYCLOPHOSPHAMIDE CONDITIONING REGIMEN
  10. CARFILZOMIB [Suspect]
     Active Substance: CARFILZOMIB
     Indication: PLASMA CELL MYELOMA
     Dosage: 3 CYCLES OF CARFILZOMIB, LENALIDOMIDE AND DEXAMETHASONE
  11. DEXAMETHASONE. [Suspect]
     Active Substance: DEXAMETHASONE
     Dosage: 1 CYCLE OF LENALIDOMIDE AND DEXAMETHASONE

REACTIONS (1)
  - Drug ineffective [Unknown]
